FAERS Safety Report 8923856 (Version 1)
Quarter: 2012Q4

REPORT INFORMATION
  Report Type: 
  Country: GB (occurrence: GB)
  Receive Date: 20121126
  Receipt Date: 20121126
  Transmission Date: 20130627
  Serious: Yes (Hospitalization, Disabling, Other)
  Sender: FDA-Public Use
  Company Number: GB-ASTRAZENECA-2012SE87461

PATIENT
  Age: 17532 Day
  Sex: Female
  Weight: 69.8 kg

DRUGS (2)
  1. LIGNOCAINE [Suspect]
     Indication: THERAPEUTIC PROCEDURE
     Route: 051
     Dates: start: 20110329, end: 20110329
  2. P2G [Concomitant]

REACTIONS (4)
  - Autonomic nervous system imbalance [Recovering/Resolving]
  - Hypotension [Recovering/Resolving]
  - Dizziness [Recovering/Resolving]
  - Syncope [Recovering/Resolving]
